FAERS Safety Report 5684189-2 (Version None)
Quarter: 2008Q1

REPORT INFORMATION
  Report Type: 
  Country: None (occurrence: None)
  Receive Date: 20080328
  Receipt Date: 20070823
  Transmission Date: 20080703
  Serious: No
  Sender: FDA-Public Use
  Company Number: US-AMGEN-KDL236403

PATIENT
  Sex: Male

DRUGS (1)
  1. NEULASTA [Suspect]
     Indication: CHEMOTHERAPY
     Route: 058
     Dates: start: 20070619

REACTIONS (5)
  - GAIT DISTURBANCE [None]
  - HAEMATOMA [None]
  - HYPOAESTHESIA [None]
  - MASS [None]
  - MYALGIA [None]
